FAERS Safety Report 5849420-9 (Version None)
Quarter: 2008Q3

REPORT INFORMATION
  Report Type: 
  Country: None (occurrence: None)
  Receive Date: 20080815
  Receipt Date: 20080730
  Transmission Date: 20090109
  Serious: Yes (Hospitalization)
  Sender: FDA-Public Use
  Company Number: 2008BI009049

PATIENT
  Age: 56 Year
  Sex: Female
  Weight: 82 kg

DRUGS (5)
  1. AVONEX [Suspect]
     Indication: MULTIPLE SCLEROSIS
     Dosage: 30 UG; QW; IM
     Route: 030
     Dates: start: 20070309
  2. GABAPENTIN [Concomitant]
  3. PETADOLEX [Concomitant]
  4. NETTLE DRAGEE [Concomitant]
  5. RED CLOVER [Concomitant]

REACTIONS (9)
  - ASTHMA [None]
  - BLOOD POTASSIUM DECREASED [None]
  - C-REACTIVE PROTEIN INCREASED [None]
  - CHEST PAIN [None]
  - CYANOSIS [None]
  - DYSPNOEA [None]
  - GRANULOMA [None]
  - INTERCOSTAL NEURALGIA [None]
  - PULMONARY HYPERTENSION [None]
